FAERS Safety Report 7909776-X (Version None)
Quarter: 2011Q4

REPORT INFORMATION
  Report Type: 
  Country: None (occurrence: None)
  Receive Date: 20111111
  Receipt Date: 20111012
  Transmission Date: 20120403
  Serious: No
  Sender: FDA-Public Use
  Company Number: US-BAYER-2011-099874

PATIENT

DRUGS (2)
  1. ALEVE (CAPLET) [Suspect]
     Indication: HEADACHE
     Dosage: 2 UNITS TAB
     Route: 048
  2. IBUPROFEN [Concomitant]
     Dosage: 600 MG, BID

REACTIONS (2)
  - HEADACHE [None]
  - NO ADVERSE EVENT [None]
